FAERS Safety Report 13120960 (Version 1)
Quarter: 2017Q1

REPORT INFORMATION
  Report Type: Spontaneous
  Country: US (occurrence: US)
  Receive Date: 20170113
  Receipt Date: 20170113
  Transmission Date: 20170428
  Serious: Yes (Disabling, Other)
  Sender: FDA-Public Use
  Company Number: None

PATIENT
  Age: 83 Year
  Sex: Female
  Weight: 59.85 kg

DRUGS (9)
  1. LEVOTHYROXIN [Concomitant]
     Active Substance: LEVOTHYROXINE
  2. RANITIDINE. [Concomitant]
     Active Substance: RANITIDINE
  3. IMIQUIMOD. [Suspect]
     Active Substance: IMIQUIMOD
     Indication: BASAL CELL CARCINOMA
     Dosage: ?          QUANTITY:12 DAYS SUPPLY;?
     Route: 061
     Dates: start: 20161101, end: 20161215
  4. LOSARTAN. [Concomitant]
     Active Substance: LOSARTAN
  5. EUCERIN [Concomitant]
     Active Substance: ENSULIZOLE\EUCERIN\OCTINOXATE\OCTISALATE\TITANIUM DIOXIDE\ZINC OXIDE
  6. SALINE NASAL SPRAY [Concomitant]
     Active Substance: SODIUM CHLORIDE
  7. SPIRONOLACTONE. [Concomitant]
     Active Substance: SPIRONOLACTONE
  8. IPRATROPIUM BROMIDE. [Concomitant]
     Active Substance: IPRATROPIUM BROMIDE
  9. ALTOIDS [Concomitant]

REACTIONS (5)
  - Pain in extremity [None]
  - Rash macular [None]
  - Arthralgia [None]
  - Pruritus generalised [None]
  - Flank pain [None]

NARRATIVE: CASE EVENT DATE: 20161101
